FAERS Safety Report 4727738-0 (Version None)
Quarter: 2005Q3

REPORT INFORMATION
  Report Type: 
  Country: None (occurrence: None)
  Receive Date: 20050725
  Receipt Date: 20050523
  Transmission Date: 20060218
  Serious: No
  Sender: FDA-Public Use
  Company Number: USA050598766

PATIENT
  Age: 33 Year
  Sex: Female
  Weight: 132 kg

DRUGS (4)
  1. STRATTERA [Suspect]
     Dosage: 40 MG
     Dates: start: 20040101
  2. NEURONTIN [Concomitant]
  3. GLUCOPHAGE (METFORMIN   /00082701/) [Concomitant]
  4. LOPID [Concomitant]

REACTIONS (10)
  - ACTIVITIES OF DAILY LIVING IMPAIRED [None]
  - CONSTIPATION [None]
  - DRUG INEFFECTIVE [None]
  - DRUG INTOLERANCE [None]
  - DRUG TOLERANCE DECREASED [None]
  - FEELING ABNORMAL [None]
  - HYPOAESTHESIA [None]
  - LIBIDO DISORDER [None]
  - SOMNOLENCE [None]
  - THINKING ABNORMAL [None]
